FAERS Safety Report 22009941 (Version 2)
Quarter: 2023Q1

REPORT INFORMATION
  Report Type: Report from Study
  Country: US (occurrence: US)
  Receive Date: 20230220
  Receipt Date: 20230324
  Transmission Date: 20230418
  Serious: Yes (Hospitalization)
  Sender: FDA-Public Use
  Company Number: US-EXELIXIS-CABO-22059044

PATIENT
  Sex: Female

DRUGS (1)
  1. CABOMETYX [Suspect]
     Active Substance: CABOZANTINIB S-MALATE
     Indication: Renal cancer
     Dosage: 40 MG, QD
     Route: 048
     Dates: start: 20211130

REACTIONS (6)
  - Stress [Unknown]
  - Muscular weakness [Unknown]
  - Dyspnoea [Unknown]
  - Palpitations [Unknown]
  - Anxiety [Unknown]
  - Back pain [Unknown]
